FAERS Safety Report 9026682 (Version 1)
Quarter: 2013Q1

REPORT INFORMATION
  Report Type: Spontaneous
  Country: US (occurrence: None)
  Receive Date: 20130114
  Receipt Date: 20130114
  Transmission Date: 20140127
  Serious: Yes (Life-Threatening, Hospitalization, Other)
  Sender: FDA-Public Use
  Company Number: None

PATIENT
  Age: 55 Year
  Sex: Female
  Weight: 56.7 kg

DRUGS (2)
  1. LYRICA [Suspect]
     Indication: PAIN
  2. LYRICA [Suspect]
     Indication: FIBROMYALGIA

REACTIONS (7)
  - Abasia [None]
  - Urinary incontinence [None]
  - Cognitive disorder [None]
  - Abnormal behaviour [None]
  - Hallucination [None]
  - Impaired work ability [None]
  - Impaired driving ability [None]
